FAERS Safety Report 4448176-4 (Version None)
Quarter: 2004Q3

REPORT INFORMATION
  Report Type: 
  Country: None (occurrence: None)
  Receive Date: 20040913
  Receipt Date: 20040716
  Transmission Date: 20050211
  Serious: Yes (Other)
  Sender: FDA-Public Use
  Company Number: PHFR2004GB02871

PATIENT
  Age: 40 Year
  Sex: Male

DRUGS (5)
  1. CLOZARIL [Suspect]
     Indication: SCHIZOPHRENIA
     Dosage: 400 MG/DAY
     Route: 048
     Dates: start: 20031020, end: 20040702
  2. TEMAZEPAM [Concomitant]
     Indication: AGITATION
     Dosage: 20 MG/DAY
  3. CLONAZEPAM [Concomitant]
     Indication: SLEEP DISORDER
     Dosage: 0.5MG/DAY
  4. GAVISCON [Concomitant]
     Dosage: 10-20 MLS QDS
  5. OMEPRAZOLE [Concomitant]
     Indication: DYSPEPSIA
     Dosage: 20 MG/DAY
     Dates: start: 20040224

REACTIONS (5)
  - LETHARGY [None]
  - LIMB DISCOMFORT [None]
  - MALAISE [None]
  - SENSATION OF HEAVINESS [None]
  - WEIGHT INCREASED [None]
